FAERS Safety Report 9676097 (Version 1)
Quarter: 2013Q4

REPORT INFORMATION
  Report Type: Spontaneous
  Country: US (occurrence: US)
  Receive Date: 20131107
  Receipt Date: 20131107
  Transmission Date: 20140711
  Serious: Yes (Hospitalization)
  Sender: FDA-Public Use
  Company Number: US-B.I. PHARMACEUTICALS,INC./RIDGEFIELD-2013-BI-35671BP

PATIENT
  Age: 80 Year
  Sex: Female

DRUGS (9)
  1. PRADAXA [Suspect]
     Indication: ATRIAL FIBRILLATION
     Dosage: 300 MG
     Route: 048
     Dates: start: 2011, end: 20131029
  2. FLECAINIDE [Concomitant]
  3. LOSARTAN [Concomitant]
  4. ADVAIR [Concomitant]
  5. ASPIRIN [Concomitant]
  6. ALBUTEROL [Concomitant]
  7. METOPROLOL [Concomitant]
  8. SPIRIVA [Concomitant]
  9. ATORVASTATIN [Concomitant]

REACTIONS (1)
  - Gastrointestinal haemorrhage [Not Recovered/Not Resolved]
